FAERS Safety Report 18758822 (Version 2)
Quarter: 2021Q1

REPORT INFORMATION
  Report Type: Report from Study
  Country: None (occurrence: US)
  Receive Date: 20210120
  Receipt Date: 20210322
  Transmission Date: 20210419
  Serious: Yes (Other)
  Sender: FDA-Public Use
  Company Number: US-ABBVIE-21K-163-3734335-00

PATIENT
  Age: 68 Year
  Sex: Female

DRUGS (1)
  1. RINVOQ [Suspect]
     Active Substance: UPADACITINIB
     Indication: RHEUMATOID ARTHRITIS
     Route: 048

REACTIONS (9)
  - Chondropathy [Not Recovered/Not Resolved]
  - Fracture [Unknown]
  - Hip surgery [Not Recovered/Not Resolved]
  - Limb mass [Not Recovered/Not Resolved]
  - Osteoporosis [Unknown]
  - Spinal fracture [Unknown]
  - Exostosis [Unknown]
  - Hip surgery [Recovered/Resolved]
  - Scoliosis [Unknown]

NARRATIVE: CASE EVENT DATE: 201903
